FAERS Safety Report 7585268-5 (Version None)
Quarter: 2011Q2

REPORT INFORMATION
  Report Type: 
  Country: None (occurrence: None)
  Receive Date: 20110629
  Receipt Date: 20110629
  Transmission Date: 20111010
  Serious: Yes (Other)
  Sender: FDA-Public Use
  Company Number: None

PATIENT
  Sex: Female
  Weight: 70.9 kg

DRUGS (1)
  1. OXALIPLATIN [Suspect]
     Indication: RECTAL CANCER
     Dosage: 231.4 MG (46.3 ML) ONE TIME INTRAVENOUS
     Route: 042
     Dates: start: 20110615

REACTIONS (5)
  - ASTHENIA [None]
  - MUSCLE SPASMS [None]
  - GAIT DISTURBANCE [None]
  - GRIP STRENGTH DECREASED [None]
  - MUSCULOSKELETAL STIFFNESS [None]
